FAERS Safety Report 4865119-X (Version None)
Quarter: 2005Q4

REPORT INFORMATION
  Report Type: 
  Country: None (occurrence: None)
  Receive Date: 20051219
  Receipt Date: 20051125
  Transmission Date: 20060501
  Serious: Yes (Life-Threatening, Hospitalization, Disabling)
  Sender: FDA-Public Use
  Company Number: 219323

PATIENT
  Age: 56 Year
  Sex: Male
  Weight: 80 kg

DRUGS (7)
  1. AVASTIN [Suspect]
     Indication: COLON CANCER
     Dosage: 630 MG, Q3W, INTRAVENOUS
     Route: 042
     Dates: start: 20050830, end: 20051025
  2. CAPECITABINE (CAPECITABINE) [Suspect]
     Indication: COLON CANCER
     Dosage: 2000 MG, Q2W, ORAL
     Route: 048
     Dates: start: 20050830, end: 20051025
  3. OXALIPLATIN(OXALIPLATIN) [Suspect]
     Indication: COLON CANCER
     Dosage: 257 MG, Q3W, INTRAVENOUS
     Route: 042
     Dates: start: 20050830, end: 20051025
  4. ACETAMINOPHEN [Concomitant]
  5. VITAMIN B6 [Concomitant]
  6. NEXIUM [Concomitant]
  7. CHLORPROMAZINE HCL                 (CHLORPROMAZINE HYDROCHLORIDE) [Concomitant]

REACTIONS (17)
  - ABDOMINAL ABSCESS [None]
  - ABDOMINAL DISTENSION [None]
  - ABDOMINAL PAIN [None]
  - ASPIRATION [None]
  - ATELECTASIS [None]
  - CHOLECYSTITIS [None]
  - DIARRHOEA [None]
  - DYSPNOEA [None]
  - ESCHERICHIA INFECTION [None]
  - HYPOTENSION [None]
  - ILEUS PARALYTIC [None]
  - MELAENA [None]
  - PNEUMONIA ASPIRATION [None]
  - PYREXIA [None]
  - RESPIRATORY FAILURE [None]
  - SEPSIS [None]
  - SUBDIAPHRAGMATIC ABSCESS [None]
